FAERS Safety Report 13878519 (Version 1)
Quarter: 2017Q3

REPORT INFORMATION
  Report Type: Spontaneous
  Country: US (occurrence: US)
  Receive Date: 20170817
  Receipt Date: 20170817
  Transmission Date: 20171127
  Serious: No
  Sender: FDA-Public Use
  Company Number: US-ROCHE-1817222

PATIENT
  Sex: Male

DRUGS (13)
  1. BENADRYL [Concomitant]
     Active Substance: DIPHENHYDRAMINE HYDROCHLORIDE
  2. PEGASYS [Suspect]
     Active Substance: PEGINTERFERON ALFA-2A
     Indication: PRODUCT USED FOR UNKNOWN INDICATION
     Route: 058
     Dates: start: 20110327
  3. LEVOTHYROXINE. [Concomitant]
     Active Substance: LEVOTHYROXINE
  4. AMLODIPINE [Concomitant]
     Active Substance: AMLODIPINE BESYLATE
  5. TAMSULOSIN [Concomitant]
     Active Substance: TAMSULOSIN
  6. ASPIR-LOW [Concomitant]
     Active Substance: ASPIRIN
  7. CHLORTALIDONE [Concomitant]
     Active Substance: CHLORTHALIDONE
  8. CLARITIN (UNITED STATES) [Concomitant]
  9. PEGASYS [Suspect]
     Active Substance: PEGINTERFERON ALFA-2A
     Route: 058
     Dates: start: 20160920
  10. LIPITOR [Concomitant]
     Active Substance: ATORVASTATIN CALCIUM
  11. DIOVAN [Concomitant]
     Active Substance: VALSARTAN
  12. WARFARIN [Concomitant]
     Active Substance: WARFARIN
  13. ACIPHEX [Concomitant]
     Active Substance: RABEPRAZOLE SODIUM

REACTIONS (2)
  - Hypersensitivity [Unknown]
  - Muscle spasms [Unknown]
